FAERS Safety Report 5156111-9 (Version None)
Quarter: 2006Q4

REPORT INFORMATION
  Report Type: 
  Country: None (occurrence: None)
  Receive Date: 20061122
  Receipt Date: 20060713
  Transmission Date: 20070319
  Serious: Yes (Other)
  Sender: FDA-Public Use
  Company Number: PHNU2006DE02526

PATIENT
  Age: 78 Year
  Sex: Male
  Weight: 75 kg

DRUGS (2)
  1. ZOMETA [Suspect]
     Indication: PROSTATE CANCER
     Dosage: 4 MG, QMO
     Dates: start: 20050623
  2. FALITHROM ^HEXAL^ [Concomitant]
     Indication: PROPHYLAXIS
     Route: 048

REACTIONS (8)
  - IMPAIRED HEALING [None]
  - OSTEONECROSIS [None]
  - PERIODONTITIS [None]
  - SCINTIGRAPHY [None]
  - TOOTH EXTRACTION [None]
  - TOOTHACHE [None]
  - WOUND CLOSURE [None]
  - X-RAY DENTAL [None]
